FAERS Safety Report 7110342-7 (Version None)
Quarter: 2010Q4

REPORT INFORMATION
  Report Type: 
  Country: None (occurrence: None)
  Receive Date: 20101118
  Receipt Date: 20101115
  Transmission Date: 20110411
  Serious: No
  Sender: FDA-Public Use
  Company Number: US-PFIZER INC-2010132049

PATIENT
  Sex: Female
  Weight: 113.4 kg

DRUGS (21)
  1. TIKOSYN [Suspect]
     Indication: ATRIAL FIBRILLATION
     Dosage: 250 UG, 2X/DAY
     Route: 048
     Dates: start: 20100701
  2. TIKOSYN [Suspect]
     Indication: ARRHYTHMIA
  3. ATACAND [Concomitant]
     Indication: HYPERTENSION
     Dosage: UNK
  4. REMICADE [Concomitant]
     Indication: RHEUMATOID ARTHRITIS
     Dosage: UNK
  5. REMICADE [Concomitant]
     Indication: ARTHRITIS
  6. PREVACID [Concomitant]
     Dosage: UNK
  7. ASCORBIC ACID [Concomitant]
     Dosage: UNK
  8. PREDNISONE [Concomitant]
     Dosage: 5 MG, UNK
  9. PREDNISONE [Concomitant]
     Dosage: UNK
  10. MELOXICAM [Concomitant]
     Dosage: UNK
  11. METHOTREXATE [Concomitant]
     Dosage: UNK
  12. FOLIC ACID [Concomitant]
     Dosage: UNK
  13. FOLIC ACID [Concomitant]
     Dosage: UNK
  14. FEXOFENADINE [Concomitant]
     Dosage: UNK
  15. CALCIUM [Concomitant]
     Dosage: UNK
  16. MAGNESIUM [Concomitant]
     Dosage: UNK
  17. ZINC [Concomitant]
     Dosage: UNK
  18. LASIX [Concomitant]
     Dosage: UNK
  19. LYRICA [Concomitant]
     Dosage: UNK
  20. POTASSIUM [Concomitant]
     Dosage: UNK
  21. COUMADIN [Concomitant]
     Dosage: UNK

REACTIONS (4)
  - BLOOD SODIUM DECREASED [None]
  - FUNGAL INFECTION [None]
  - NASAL DISCOMFORT [None]
  - OROPHARYNGEAL PAIN [None]
